FAERS Safety Report 23234428 (Version 3)
Quarter: 2024Q1

REPORT INFORMATION
  Report Type: Spontaneous
  Country: US (occurrence: US)
  Receive Date: 20231128
  Receipt Date: 20240129
  Transmission Date: 20240410
  Serious: No
  Sender: FDA-Public Use
  Company Number: US-ALKERMES INC.-ALK-2023-004386

PATIENT
  Age: 64 Year
  Sex: Female
  Weight: 62.585 kg

DRUGS (1)
  1. VIVITROL [Suspect]
     Active Substance: NALTREXONE
     Indication: Alcohol abuse
     Dosage: 380 MILLIGRAM, QMO
     Route: 030
     Dates: start: 20230630, end: 20231006

REACTIONS (5)
  - Needle issue [Recovered/Resolved]
  - Injection site pain [Recovering/Resolving]
  - Gait disturbance [Recovered/Resolved]
  - Wrong technique in product usage process [Recovered/Resolved]
  - Confusional state [Unknown]

NARRATIVE: CASE EVENT DATE: 20230501
